FAERS Safety Report 10694462 (Version 14)
Quarter: 2016Q2

REPORT INFORMATION
  Report Type: Report from Study
  Country: CA (occurrence: CA)
  Receive Date: 20150107
  Receipt Date: 20160530
  Transmission Date: 20160815
  Serious: Yes (Life-Threatening, Hospitalization, Other)
  Sender: FDA-Public Use
  Company Number: CA-ROCHE-1240115

PATIENT
  Age: 72 Year
  Sex: Male
  Weight: 118 kg

DRUGS (13)
  1. ACTEMRA [Suspect]
     Active Substance: TOCILIZUMAB
     Indication: RHEUMATOID ARTHRITIS
     Route: 042
     Dates: start: 20111013
  2. ACTEMRA [Suspect]
     Active Substance: TOCILIZUMAB
     Route: 042
     Dates: start: 20111110
  3. ACTEMRA [Suspect]
     Active Substance: TOCILIZUMAB
     Route: 042
     Dates: start: 20120313
  4. ACTEMRA [Suspect]
     Active Substance: TOCILIZUMAB
     Route: 042
     Dates: start: 20120410
  5. ACTEMRA [Suspect]
     Active Substance: TOCILIZUMAB
     Route: 042
     Dates: start: 20120816
  6. PREDNISONE. [Concomitant]
     Active Substance: PREDNISONE
  7. ACTONEL [Concomitant]
     Active Substance: RISEDRONATE SODIUM
  8. ACTEMRA [Suspect]
     Active Substance: TOCILIZUMAB
     Route: 042
     Dates: start: 20120719
  9. MOBICOX [Suspect]
     Active Substance: MELOXICAM
     Indication: RHEUMATOID ARTHRITIS
     Route: 065
  10. FOLIC ACID. [Concomitant]
     Active Substance: FOLIC ACID
  11. ACTEMRA [Suspect]
     Active Substance: TOCILIZUMAB
     Route: 042
     Dates: start: 20141023
  12. METHOTREXATE [Concomitant]
     Active Substance: METHOTREXATE
  13. ALLOPURINOL. [Concomitant]
     Active Substance: ALLOPURINOL

REACTIONS (21)
  - Gastrointestinal disorder [Unknown]
  - Cartilage injury [Not Recovered/Not Resolved]
  - Arthralgia [Not Recovered/Not Resolved]
  - Cough [Unknown]
  - Weight increased [Unknown]
  - Pain [Unknown]
  - Oxygen saturation decreased [Unknown]
  - Cardiac failure [Unknown]
  - Pain in extremity [Not Recovered/Not Resolved]
  - Small intestinal obstruction [Not Recovered/Not Resolved]
  - Pericardial effusion [Unknown]
  - Oxygen saturation decreased [Unknown]
  - Colon cancer [Unknown]
  - Gait disturbance [Unknown]
  - Throat irritation [Not Recovered/Not Resolved]
  - Throat lesion [Not Recovered/Not Resolved]
  - Pulmonary oedema [Unknown]
  - Pulmonary oedema [Unknown]
  - Hypertension [Unknown]
  - Pleural effusion [Unknown]
  - Infusion related reaction [Unknown]

NARRATIVE: CASE EVENT DATE: 2014
